FAERS Safety Report 6484511-3 (Version None)
Quarter: 2009Q4

REPORT INFORMATION
  Report Type: 
  Country: None (occurrence: None)
  Receive Date: 20091209
  Receipt Date: 20091201
  Transmission Date: 20100525
  Serious: Yes (Other)
  Sender: FDA-Public Use
  Company Number: PHBS2007JP21568

PATIENT
  Sex: Female
  Weight: 43 kg

DRUGS (6)
  1. ZOMETA [Suspect]
     Indication: METASTASES TO BONE
     Dosage: 4MG (PER ADMINISTRATION)
     Route: 042
     Dates: start: 20060713, end: 20070919
  2. ZOMETA [Suspect]
     Dosage: 4MG (PER ADMINISTRATION)
     Route: 042
     Dates: start: 20080610, end: 20081022
  3. ZOMETA [Suspect]
     Dosage: 4MG (PER ADMINISTRATION)
     Route: 042
     Dates: start: 20090127, end: 20090421
  4. AREDIA [Suspect]
     Indication: METASTASES TO BONE
     Dosage: UNK
     Route: 042
     Dates: start: 20010601
  5. AREDIA [Suspect]
     Dosage: 45 MG TWICE MONTHLY
     Dates: start: 20040707, end: 20060615
  6. FEMARA [Concomitant]
     Indication: BREAST CANCER
     Dosage: 2.5 MG/DAY
     Route: 048
     Dates: start: 19960801

REACTIONS (12)
  - ALVEOLAR OSTEITIS [None]
  - BONE DISORDER [None]
  - DRUG HYPERSENSITIVITY [None]
  - GINGIVAL BLEEDING [None]
  - GINGIVAL ERYTHEMA [None]
  - GINGIVAL PAIN [None]
  - GINGIVAL SWELLING [None]
  - GINGIVITIS [None]
  - HAEMATOMA [None]
  - ORAL DISCHARGE [None]
  - ORAL DISCOMFORT [None]
  - OSTEOMYELITIS [None]
